FAERS Safety Report 5942580-0 (Version None)
Quarter: 2008Q4

REPORT INFORMATION
  Report Type: 
  Country: None (occurrence: None)
  Receive Date: 20081105
  Receipt Date: 20081031
  Transmission Date: 20090506
  Serious: Yes (Other)
  Sender: FDA-Public Use
  Company Number: US-PFIZER INC-2008045442

PATIENT
  Sex: Male

DRUGS (8)
  1. CELEBREX [Suspect]
     Indication: ROTATOR CUFF SYNDROME
     Route: 048
     Dates: start: 19880101
  2. CELEBREX [Suspect]
     Indication: KNEE ARTHROPLASTY
  3. ARTHROTEC [Suspect]
     Indication: KNEE ARTHROPLASTY
     Route: 048
     Dates: start: 20060101
  4. LIPITOR [Concomitant]
     Route: 048
  5. DOXEPIN HCL [Concomitant]
     Route: 048
  6. VALIUM [Concomitant]
     Route: 048
  7. CYMBALTA [Concomitant]
     Route: 048
  8. MORPHINE [Concomitant]
     Route: 048

REACTIONS (6)
  - GASTRIC ULCER [None]
  - GASTRITIS [None]
  - INTESTINAL POLYP [None]
  - MUSCLE ATROPHY [None]
  - NERVE INJURY [None]
  - RIB FRACTURE [None]
